FAERS Safety Report 15564167 (Version 1)
Quarter: 2018Q4

REPORT INFORMATION
  Report Type: Other
  Country: NL (occurrence: NL)
  Receive Date: 20181030
  Receipt Date: 20181030
  Transmission Date: 20190205
  Serious: Yes (Other)
  Sender: FDA-Public Use
  Company Number: NL-APOTEX-2018AP023379

PATIENT
  Sex: Male

DRUGS (9)
  1. COMBIVENT [Suspect]
     Active Substance: ALBUTEROL SULFATE\IPRATROPIUM BROMIDE
     Indication: ASTHMA
     Dosage: (2X NEBULIZATION), QD
     Route: 065
  2. ATIMOS [Suspect]
     Active Substance: FORMOTEROL
     Indication: ASTHMA
     Route: 065
  3. PREDNISONE. [Suspect]
     Active Substance: PREDNISONE
     Indication: ASTHMA
     Dosage: 30 MG, BID (PREVIOUS DOSAGE,  30 MG, BID)
     Route: 065
     Dates: start: 201710
  4. PREDNISONE. [Suspect]
     Active Substance: PREDNISONE
     Dosage: 15 MG, BID
     Route: 065
     Dates: start: 201801
  5. VENTOLIN [Concomitant]
     Active Substance: ALBUTEROL SULFATE
     Indication: ASTHMA
     Route: 065
  6. SERETIDE [Suspect]
     Active Substance: FLUTICASONE PROPIONATE\SALMETEROL XINAFOATE
     Indication: ASTHMA
     Dosage: UNK
     Route: 065
  7. XOLAIR [Suspect]
     Active Substance: OMALIZUMAB
     Indication: ASTHMA
     Dosage: 5 DF, EVERY 4 WEEKS (1786 DOSAGE FORMS DAILY; 1 DOSAGE FORM IS 1 INJECTION, 5 INJECTIONS, EVERY 4 )
     Route: 065
  8. BUDESONIDE. [Suspect]
     Active Substance: BUDESONIDE
     Indication: ASTHMA
     Dosage: 2 DF, UNK (1 DOSAGE FORM EQUALS TO 1 AMPOULE)
     Route: 065
  9. ALVESCO [Suspect]
     Active Substance: CICLESONIDE
     Indication: ASTHMA
     Route: 065

REACTIONS (2)
  - Asthma [Not Recovered/Not Resolved]
  - Therapy change [Unknown]
